FAERS Safety Report 9479861 (Version 1)
Quarter: 2013Q3

REPORT INFORMATION
  Report Type: Spontaneous
  Country: US (occurrence: US)
  Receive Date: 20130828
  Receipt Date: 20130828
  Transmission Date: 20140515
  Serious: Yes (Hospitalization)
  Sender: FDA-Public Use
  Company Number: US-AMGEN-KDL051809

PATIENT
  Age: 63 Year
  Sex: 0

DRUGS (2)
  1. ENBREL [Suspect]
     Indication: RHEUMATOID ARTHRITIS
     Dosage: 25 MG, 2 TIMES/WK
     Route: 058
     Dates: start: 200107, end: 20020701
  2. HYDROXYCHLOROQUINE PHOSPHATE [Concomitant]

REACTIONS (3)
  - Pneumonia [Unknown]
  - White blood cell count decreased [Unknown]
  - Biopsy liver [Unknown]
